FAERS Safety Report 4644783-4 (Version None)
Quarter: 2005Q2

REPORT INFORMATION
  Report Type: 
  Country: None (occurrence: None)
  Receive Date: 20050426
  Receipt Date: 20050419
  Transmission Date: 20051028
  Serious: Yes (Other)
  Sender: FDA-Public Use
  Company Number: 200513302US

PATIENT
  Sex: Female

DRUGS (1)
  1. DDAVP [Suspect]
     Dosage: DOSE: UNK
     Dates: start: 19950101, end: 19950101

REACTIONS (1)
  - GRAND MAL CONVULSION [None]
